FAERS Safety Report 6198492-3 (Version None)
Quarter: 2009Q2

REPORT INFORMATION
  Report Type: 
  Country: None (occurrence: None)
  Receive Date: 20090521
  Receipt Date: 20090514
  Transmission Date: 20091009
  Serious: Yes (Hospitalization, Other)
  Sender: FDA-Public Use
  Company Number: PHHY2009GB19185

PATIENT
  Sex: Female

DRUGS (1)
  1. CLOZARIL [Suspect]
     Indication: SCHIZOPHRENIA
     Dosage: UNK
     Dates: start: 20020502

REACTIONS (12)
  - ANTIPSYCHOTIC DRUG LEVEL INCREASED [None]
  - CONVULSION [None]
  - DEEP VEIN THROMBOSIS [None]
  - FALL [None]
  - FIBRIN D DIMER INCREASED [None]
  - HYPOTENSION [None]
  - HYPOXIA [None]
  - PLATELET COUNT DECREASED [None]
  - PLEURAL EFFUSION [None]
  - PSYCHOTIC DISORDER [None]
  - SEDATION [None]
  - SYNCOPE [None]
